FAERS Safety Report 4552014-9 (Version None)
Quarter: 2005Q1

REPORT INFORMATION
  Report Type: 
  Country: None (occurrence: None)
  Receive Date: 20050112
  Receipt Date: 20041223
  Transmission Date: 20050727
  Serious: Yes (Hospitalization)
  Sender: FDA-Public Use
  Company Number: ENT 2004-0178

PATIENT
  Sex: Female

DRUGS (9)
  1. COMTESS(ENTACAPONE) [Suspect]
     Indication: PARKINSON'S DISEASE
     Route: 048
     Dates: start: 20010101
  2. SINEMET [Concomitant]
  3. APOMORPHINE [Concomitant]
  4. METFORMIN HCL [Concomitant]
  5. GABAPENTIN [Concomitant]
  6. FLUOXETINE [Concomitant]
  7. MADOPAR [Concomitant]
  8. APOMORPHINE [Concomitant]
  9. DOMPERIDONE [Concomitant]

REACTIONS (5)
  - CONFUSIONAL STATE [None]
  - DYSKINESIA [None]
  - HEPATOMEGALY [None]
  - LIVER DISORDER [None]
  - LIVER FUNCTION TEST ABNORMAL [None]
